FAERS Safety Report 9641879 (Version 3)
Quarter: 2013Q4

REPORT INFORMATION
  Report Type: Spontaneous
  Country: US (occurrence: US)
  Receive Date: 20131023
  Receipt Date: 20131105
  Transmission Date: 20140711
  Serious: Yes (Other)
  Sender: FDA-Public Use
  Company Number: US-TEVA-440064USA

PATIENT
  Age: 26 Year
  Sex: Female
  Weight: 91.25 kg

DRUGS (2)
  1. PLAN B ONE-STEP [Suspect]
     Indication: POST COITAL CONTRACEPTION
     Dosage: 1.5 MILLIGRAM DAILY;
     Route: 048
     Dates: start: 20131018, end: 20131018
  2. MIRENA [Concomitant]
     Indication: CONTRACEPTION

REACTIONS (13)
  - Exposure during pregnancy [Unknown]
  - Adnexa uteri pain [Recovered/Resolved]
  - Somnolence [Unknown]
  - Decreased appetite [Unknown]
  - Dehydration [Unknown]
  - Asthenia [Recovered/Resolved]
  - Parosmia [Unknown]
  - Nervousness [Recovered/Resolved]
  - Eructation [Recovered/Resolved]
  - Nausea [Unknown]
  - Vomiting [Recovered/Resolved]
  - Metrorrhagia [Recovered/Resolved]
  - Pregnancy [Unknown]
